FAERS Safety Report 8830254 (Version 4)
Quarter: 2012Q4

REPORT INFORMATION
  Report Type: 
  Country: JP (occurrence: JP)
  Receive Date: 20121008
  Receipt Date: 20121128
  Transmission Date: 20130627
  Serious: Yes (Hospitalization)
  Sender: FDA-Public Use
  Company Number: JP-ABBOTT-12P-087-0990693-00

PATIENT
  Age: 72 Year
  Sex: Female

DRUGS (6)
  1. CLARITH [Suspect]
     Indication: NASOPHARYNGITIS
     Route: 048
     Dates: start: 20120926
  2. AMLODIPINE BESILATE [Interacting]
     Indication: HYPERTENSION
     Route: 048
  3. HOKUNALIN [Concomitant]
     Indication: NASOPHARYNGITIS
     Route: 062
     Dates: start: 20120926
  4. MEDICON [Concomitant]
     Indication: NASOPHARYNGITIS
     Route: 048
     Dates: start: 20120926
  5. CARBOCISTEINE [Concomitant]
     Indication: NASOPHARYNGITIS
     Route: 048
     Dates: start: 20120926
  6. PL COMBINATION GRANULES [Concomitant]
     Indication: NASOPHARYNGITIS
     Route: 048
     Dates: start: 20120926

REACTIONS (4)
  - Drug interaction [Recovered/Resolved]
  - Epilepsy [Recovered/Resolved]
  - Blood pressure decreased [Recovered/Resolved]
  - Loss of consciousness [Recovered/Resolved]
